FAERS Safety Report 4830471-8 (Version None)
Quarter: 2005Q4

REPORT INFORMATION
  Report Type: 
  Country: None (occurrence: None)
  Receive Date: 20051117
  Receipt Date: 20051006
  Transmission Date: 20060501
  Serious: Yes (Hospitalization, Disabling)
  Sender: FDA-Public Use
  Company Number: 200518928GDDC

PATIENT
  Age: 35 Year
  Sex: Male

DRUGS (2)
  1. LANTUS [Suspect]
     Indication: DIABETES MELLITUS INSULIN-DEPENDENT
     Dosage: DOSE UNIT: UNITS
     Route: 058
     Dates: start: 20050901, end: 20050901
  2. HUMALOG [Suspect]
     Indication: DIABETES MELLITUS INSULIN-DEPENDENT
     Dosage: DOSE: 4-6; DOSE UNIT: UNITS
     Route: 058
     Dates: start: 20050901, end: 20050901

REACTIONS (7)
  - BLOOD GLUCOSE INCREASED [None]
  - DYSPNOEA [None]
  - HEADACHE [None]
  - HYPERHIDROSIS [None]
  - HYPERTENSION [None]
  - HYPERVENTILATION [None]
  - MALAISE [None]
